FAERS Safety Report 18390581 (Version 2)
Quarter: 2021Q4

REPORT INFORMATION
  Report Type: Report from Study
  Country: US (occurrence: US)
  Receive Date: 20201016
  Receipt Date: 20211120
  Transmission Date: 20220303
  Serious: Yes (Other)
  Sender: FDA-Public Use
  Company Number: US-NOVARTISTESTPH-NVSC2020US275985

PATIENT
  Age: 34 Year
  Sex: Female

DRUGS (2)
  1. MAYZENT [Suspect]
     Active Substance: SIPONIMOD
     Indication: Multiple sclerosis
     Dosage: 2 MG, QD
     Route: 048
     Dates: start: 20201009, end: 20201009
  2. MAYZENT [Suspect]
     Active Substance: SIPONIMOD
     Dosage: 2 MG, QD
     Route: 048
     Dates: start: 20201009

REACTIONS (9)
  - Multiple sclerosis relapse [Unknown]
  - Disturbance in attention [Unknown]
  - Aphasia [Unknown]
  - Vertigo positional [Unknown]
  - Muscle rigidity [Unknown]
  - Fatigue [Unknown]
  - Depression [Unknown]
  - Anxiety [Recovered/Resolved]
  - Therapeutic response unexpected [Unknown]

NARRATIVE: CASE EVENT DATE: 20201009
